FAERS Safety Report 19489958 (Version 1)
Quarter: 2021Q3

REPORT INFORMATION
  Report Type: Spontaneous
  Country: GR (occurrence: GR)
  Receive Date: 20210704
  Receipt Date: 20210704
  Transmission Date: 20211014
  Serious: Yes (Life-Threatening, Other)
  Sender: FDA-Public Use
  Company Number: GR-AMGEN-GRCSP2021099629

PATIENT
  Age: 44 Year
  Sex: Male

DRUGS (2)
  1. ADALIMUMAB [Suspect]
     Active Substance: ADALIMUMAB
     Indication: PSORIATIC ARTHROPATHY
     Dosage: 40 MG END OF THE WEEK (EOW)
     Route: 058
     Dates: start: 20180927, end: 20201202
  2. METHOTREXATE. [Concomitant]
     Active Substance: METHOTREXATE
     Indication: PSORIATIC ARTHROPATHY
     Dosage: 10 MILLIGRAM, QWK
     Route: 048
     Dates: start: 20180110, end: 20201205

REACTIONS (1)
  - Renal neoplasm [Recovered/Resolved with Sequelae]
